FAERS Safety Report 15082311 (Version 1)
Quarter: 2018Q2

REPORT INFORMATION
  Report Type: Spontaneous
  Country: US (occurrence: US)
  Receive Date: 20180607
  Receipt Date: 20180607
  Transmission Date: 20180711
  Serious: Yes (Other)
  Sender: FDA-Public Use
  Company Number: None

PATIENT
  Age: 32 Year
  Sex: Female
  Weight: 86.18 kg

DRUGS (3)
  1. PARAGARD T 380A [Suspect]
     Active Substance: COPPER
  2. PRENATAL VITAMINS [Concomitant]
     Active Substance: VITAMINS
  3. CETIRIZINE [Concomitant]
     Active Substance: CETIRIZINE HYDROCHLORIDE

REACTIONS (5)
  - Migraine [None]
  - Fatigue [None]
  - Dizziness [None]
  - Optic neuritis [None]
  - Depressed level of consciousness [None]

NARRATIVE: CASE EVENT DATE: 20180409
